FAERS Safety Report 21513809 (Version 2)
Quarter: 2022Q4

REPORT INFORMATION
  Report Type: Spontaneous
  Country: US (occurrence: US)
  Receive Date: 20221027
  Receipt Date: 20221117
  Transmission Date: 20230113
  Serious: No
  Sender: FDA-Public Use
  Company Number: US-SA-SAC20221026001308

PATIENT
  Age: 76 Year
  Sex: Male

DRUGS (1)
  1. DUPIXENT [Suspect]
     Active Substance: DUPILUMAB
     Indication: Dermatitis atopic
     Dosage: 300 MG, QOW
     Route: 058

REACTIONS (4)
  - SARS-CoV-2 test positive [Not Recovered/Not Resolved]
  - Decreased appetite [Not Recovered/Not Resolved]
  - Influenza like illness [Not Recovered/Not Resolved]
  - Eye irritation [Not Recovered/Not Resolved]
